FAERS Safety Report 21836844 (Version 4)
Quarter: 2023Q2

REPORT INFORMATION
  Report Type: Spontaneous
  Country: US (occurrence: US)
  Receive Date: 20230109
  Receipt Date: 20230629
  Transmission Date: 20230721
  Serious: Yes (Other)
  Sender: FDA-Public Use
  Company Number: US-SA-2023SA006100

PATIENT
  Age: 47 Year
  Sex: Male

DRUGS (2)
  1. ELOCTATE [Suspect]
     Active Substance: EFMOROCTOCOG ALFA
     Dosage: 4000 IU, QW
     Route: 042
  2. ELOCTATE [Suspect]
     Active Substance: EFMOROCTOCOG ALFA
     Dosage: 4000 IU, QW
     Route: 042

REACTIONS (6)
  - Muscle haemorrhage [Unknown]
  - Haemorrhage [Recovering/Resolving]
  - Haemorrhage [Not Recovered/Not Resolved]
  - Soft tissue haemorrhage [Unknown]
  - Limb injury [Unknown]
  - Arthropathy [Unknown]

NARRATIVE: CASE EVENT DATE: 20230101
